FAERS Safety Report 4411003-5 (Version None)
Quarter: 2004Q3

REPORT INFORMATION
  Report Type: 
  Country: None (occurrence: None)
  Receive Date: 20040729
  Receipt Date: 20040701
  Transmission Date: 20050211
  Serious: Yes (Hospitalization, Disabling)
  Sender: FDA-Public Use
  Company Number: FR-BRISTOL-MYERS SQUIBB COMPANY-12631032

PATIENT
  Age: 20 Year
  Sex: Male

DRUGS (4)
  1. COUMADIN [Suspect]
     Indication: PULMONARY EMBOLISM
     Dosage: WAS STARTED IN REPLACEMENT OF HEPARIN THERAPY.
     Route: 048
     Dates: start: 20040120
  2. HEPARIN [Concomitant]
     Indication: PULMONARY EMBOLISM
     Dosage: DEC-03:HEPARIN REPLACED BY FLUINDIONE;RESTARTED 12-JAN TO 20-JAN-04, THEN REPLACED BY WARFARIN
     Dates: start: 20031205, end: 20040120
  3. PREVISCAN [Concomitant]
     Indication: PULMONARY EMBOLISM
     Dosage: STARTED A FEW DAYS AFTER 05-DEC-2003 + REPLACED HEPARIN THERAPY. TREATMENT UNTIL 12-JAN-2004.
     Dates: start: 20031201, end: 20040112
  4. PROTEIN SUPPLEMENT [Concomitant]
     Indication: PROTEIN C DEFICIENCY

REACTIONS (5)
  - DEEP VEIN THROMBOSIS [None]
  - PHLEBOTHROMBOSIS [None]
  - PRIAPISM [None]
  - SKIN NECROSIS [None]
  - THROMBOSIS [None]
